FAERS Safety Report 21857836 (Version 4)
Quarter: 2024Q4

REPORT INFORMATION
  Report Type: Spontaneous
  Country: US (occurrence: US)
  Receive Date: 20230113
  Receipt Date: 20241019
  Transmission Date: 20250114
  Serious: Yes (Hospitalization)
  Sender: SANOFI AVENTIS
  Company Number: US-SA-SAC20230112001532

PATIENT
  Age: 64 Year
  Sex: Female

DRUGS (4)
  1. CAPRELSA [Suspect]
     Active Substance: VANDETANIB
     Indication: Thyroid cancer
     Dosage: 200 MG, QD
     Route: 048
     Dates: start: 20171013
  2. CAPRELSA [Suspect]
     Active Substance: VANDETANIB
     Dosage: 300 MG
     Route: 048
  3. LEVOTHYROXINE [Concomitant]
     Active Substance: LEVOTHYROXINE
     Dosage: 150 MCG
     Route: 065
  4. LEVOTHYROXINE [Concomitant]
     Active Substance: LEVOTHYROXINE
     Dosage: 120 MCG
     Route: 065

REACTIONS (5)
  - Hospitalisation [Unknown]
  - Cholelithiasis [Unknown]
  - Thyroid hormones increased [Unknown]
  - Depression [Unknown]
  - Hypertension [Unknown]
